FAERS Safety Report 18722011 (Version 1)
Quarter: 2021Q1

REPORT INFORMATION
  Report Type: Spontaneous
  Country: US (occurrence: US)
  Receive Date: 20210111
  Receipt Date: 20210111
  Transmission Date: 20210419
  Serious: Yes (Hospitalization, Other)
  Sender: FDA-Public Use
  Company Number: US-AUROBINDO-AUR-APL-2012-05418

PATIENT
  Age: 42 Year
  Sex: Male

DRUGS (1)
  1. TERBINAFINE. [Suspect]
     Active Substance: TERBINAFINE
     Indication: DERMATOPHYTOSIS OF NAIL
     Dosage: UNK
     Route: 048

REACTIONS (5)
  - Skin burning sensation [Recovered/Resolved]
  - Chills [Recovered/Resolved]
  - Rash erythematous [Recovered/Resolved]
  - Leukocytosis [Recovered/Resolved]
  - Acute generalised exanthematous pustulosis [Recovered/Resolved]
